FAERS Safety Report 11334088 (Version 1)
Quarter: 2015Q3

REPORT INFORMATION
  Report Type: Spontaneous
  Country: US (occurrence: US)
  Receive Date: 20150803
  Receipt Date: 20150803
  Transmission Date: 20151125
  Serious: Yes (Hospitalization)
  Sender: FDA-Public Use
  Company Number: US-UPSHER-SMITH LABORATORIES, INC.-15001930

PATIENT
  Age: 56 Year
  Sex: Male

DRUGS (3)
  1. PACERONE [Suspect]
     Active Substance: AMIODARONE HYDROCHLORIDE
     Dosage: 200 MG, BID
     Route: 048
     Dates: start: 20150602, end: 20150710
  2. IMDUR [Concomitant]
     Active Substance: ISOSORBIDE MONONITRATE
     Dosage: UNK
     Dates: start: 20150725
  3. PACERONE [Suspect]
     Active Substance: AMIODARONE HYDROCHLORIDE
     Indication: ATRIAL FIBRILLATION
     Dosage: UNK, UNK
     Route: 048
     Dates: start: 20150725, end: 20150725

REACTIONS (7)
  - Electrocardiogram abnormal [Recovered/Resolved]
  - Fluid overload [Unknown]
  - Heart rate decreased [Recovered/Resolved]
  - Dyspnoea [Not Recovered/Not Resolved]
  - Cardiac failure acute [Unknown]
  - Atrial fibrillation [Recovered/Resolved]
  - Chest pain [Unknown]

NARRATIVE: CASE EVENT DATE: 201507
